FAERS Safety Report 7404210-0 (Version None)
Quarter: 2011Q2

REPORT INFORMATION
  Report Type: 
  Country: None (occurrence: None)
  Receive Date: 20110408
  Receipt Date: 20110405
  Transmission Date: 20111010
  Serious: Yes (Disabling, Other)
  Sender: FDA-Public Use
  Company Number: US-BAYER-200829876NA

PATIENT
  Sex: Female

DRUGS (3)
  1. YAZ [Suspect]
     Indication: PRODUCT USED FOR UNKNOWN INDICATION
     Dosage: UNK
     Dates: start: 20061115, end: 20070113
  2. YASMIN [Suspect]
     Indication: CONTRACEPTION
     Dosage: UNK
     Dates: start: 20061115, end: 20070113
  3. YASMIN [Suspect]
     Indication: MENORRHAGIA

REACTIONS (17)
  - NECK PAIN [None]
  - ANGER [None]
  - ACTIVITIES OF DAILY LIVING IMPAIRED [None]
  - INJURY [None]
  - PHLEBITIS [None]
  - DEHYDRATION [None]
  - PAIN [None]
  - COAGULOPATHY [None]
  - NAUSEA [None]
  - DEPRESSION [None]
  - EMOTIONAL DISTRESS [None]
  - FEAR [None]
  - HEADACHE [None]
  - UNEVALUABLE EVENT [None]
  - CEREBRAL VENOUS THROMBOSIS [None]
  - ANXIETY [None]
  - MUSCLE SPASMS [None]
